FAERS Safety Report 10308436 (Version 1)
Quarter: 2014Q3

REPORT INFORMATION
  Report Type: Spontaneous
  Country: US (occurrence: None)
  Receive Date: 20140715
  Receipt Date: 20140715
  Transmission Date: 20150326
  Serious: Yes (Other)
  Sender: FDA-Public Use
  Company Number: None

PATIENT
  Age: 39 Year
  Sex: Male
  Weight: 92.9 kg

DRUGS (9)
  1. CEFAZOLIN [Concomitant]
     Active Substance: CEFAZOLIN
  2. DESFLURANE [Concomitant]
     Active Substance: DESFLURANE
  3. PROPOFOL. [Concomitant]
     Active Substance: PROPOFOL
  4. LIDOCAINE. [Concomitant]
     Active Substance: LIDOCAINE
  5. BUPIVACAINE HCL [Suspect]
     Active Substance: BUPIVACAINE HYDROCHLORIDE
     Indication: NERVE BLOCK
     Dosage: AROUND FEMORAL NERVE
     Dates: start: 20140521, end: 20140521
  6. KETOROLAC [Concomitant]
     Active Substance: KETOROLAC\KETOROLAC TROMETHAMINE
  7. ONDANSETRON [Concomitant]
     Active Substance: ONDANSETRON
  8. FENTANYL. [Concomitant]
     Active Substance: FENTANYL
  9. OXYGEN. [Concomitant]
     Active Substance: OXYGEN

REACTIONS (2)
  - Procedural pain [None]
  - Drug ineffective [None]

NARRATIVE: CASE EVENT DATE: 20140521
